FAERS Safety Report 10199179 (Version 2)
Quarter: 2014Q2

REPORT INFORMATION
  Report Type: Spontaneous
  Country: US (occurrence: US)
  Receive Date: 20140527
  Receipt Date: 20140611
  Transmission Date: 20141212
  Serious: Yes (Death, Other)
  Sender: FDA-Public Use
  Company Number: US-CELGENEUS-163-21880-14054354

PATIENT
  Age: 69 Year
  Sex: Male

DRUGS (5)
  1. REVLIMID [Suspect]
     Indication: PLASMA CELL MYELOMA
     Dosage: 5 MILLIGRAM
     Route: 048
     Dates: start: 20140227, end: 20140415
  2. RENVELA [Concomitant]
     Indication: RENAL FAILURE
     Dosage: 2400 MILLIGRAM
     Route: 048
  3. ACYCLOVIR [Concomitant]
     Indication: HERPES VIRUS INFECTION
     Dosage: 800 MILLIGRAM
     Route: 048
  4. ALLOPURINOL [Concomitant]
     Indication: PRODUCT USED FOR UNKNOWN INDICATION
     Dosage: 200 MILLIGRAM
     Route: 048
  5. IRON [Concomitant]
     Indication: ANAEMIA
     Dosage: 65 MILLIGRAM
     Route: 048

REACTIONS (10)
  - Acute respiratory failure [Fatal]
  - Shock [Fatal]
  - Metabolic encephalopathy [Fatal]
  - Hypercalcaemia [Fatal]
  - Thrombocytopenia [Fatal]
  - Plasma cell myeloma [Fatal]
  - Renal failure acute [Fatal]
  - Pulmonary hypertension [Unknown]
  - Renal failure chronic [Unknown]
  - Cardiac failure congestive [Unknown]
